FAERS Safety Report 5486805-7 (Version None)
Quarter: 2007Q4

REPORT INFORMATION
  Report Type: 
  Country: None (occurrence: None)
  Receive Date: 20071016
  Receipt Date: 20071010
  Transmission Date: 20080405
  Serious: Yes (Hospitalization)
  Sender: FDA-Public Use
  Company Number: FR-AVENTIS-200713251FR

PATIENT
  Age: 91 Year
  Sex: Female

DRUGS (6)
  1. LASIX [Suspect]
     Route: 048
     Dates: start: 20070530, end: 20070718
  2. LOPRIL                             /00498401/ [Suspect]
     Route: 048
     Dates: start: 20070530, end: 20070718
  3. CARDENSIEL [Concomitant]
     Route: 048
     Dates: start: 20070530, end: 20070718
  4. CARDENSIEL [Concomitant]
     Route: 048
     Dates: start: 20070719
  5. CORDARONE [Concomitant]
     Indication: ATRIAL FIBRILLATION
     Route: 048
     Dates: start: 20070530, end: 20070718
  6. CORDARONE [Concomitant]
     Route: 048
     Dates: start: 20070719

REACTIONS (2)
  - DEHYDRATION [None]
  - RENAL FAILURE ACUTE [None]
